FAERS Safety Report 17323543 (Version 1)
Quarter: 2020Q1

REPORT INFORMATION
  Report Type: Other
  Country: GB (occurrence: GB)
  Receive Date: 20200127
  Receipt Date: 20200127
  Transmission Date: 20200409
  Serious: Yes (Other)
  Sender: FDA-Public Use
  Company Number: GB-MACLEODS PHARMACEUTICALS US LTD-MAC2020024886

PATIENT

DRUGS (1)
  1. TAMSULOSIN 0.4 MG [Suspect]
     Active Substance: TAMSULOSIN
     Indication: MICTURITION URGENCY
     Dosage: 400 MICROGRAM, QD, MODIFIED-RELEASE CAPSULE, HARD
     Route: 048
     Dates: start: 20190319, end: 20190321

REACTIONS (5)
  - Hot flush [Recovered/Resolved]
  - Dyspepsia [Unknown]
  - Dry throat [Unknown]
  - Gastrooesophageal reflux disease [Recovering/Resolving]
  - Chest discomfort [Unknown]

NARRATIVE: CASE EVENT DATE: 20190319
